FAERS Safety Report 13151599 (Version 2)
Quarter: 2017Q1

REPORT INFORMATION
  Report Type: Spontaneous
  Country: US (occurrence: US)
  Receive Date: 20170125
  Receipt Date: 20170317
  Transmission Date: 20170428
  Serious: No
  Sender: FDA-Public Use
  Company Number: US-ASTRAZENECA-2017SE04662

PATIENT
  Age: 69 Year
  Sex: Male
  Weight: 97.5 kg

DRUGS (11)
  1. TUDORZA PRESSAIR [Suspect]
     Active Substance: ACLIDINIUM BROMIDE
     Indication: PULMONARY HYPERTENSION
     Route: 055
     Dates: start: 2015
  2. LIPITOR [Concomitant]
     Active Substance: ATORVASTATIN CALCIUM
     Indication: BLOOD CHOLESTEROL ABNORMAL
     Dosage: UNKNOWN
     Route: 048
     Dates: start: 2000, end: 2015
  3. METFORMIN [Concomitant]
     Active Substance: METFORMIN HYDROCHLORIDE
     Indication: DIABETES MELLITUS
     Route: 048
     Dates: start: 1987
  4. VIAGRA [Concomitant]
     Active Substance: SILDENAFIL CITRATE
     Indication: PULMONARY HYPERTENSION
     Route: 048
     Dates: start: 201402
  5. ATORVASTATIN [Concomitant]
     Active Substance: ATORVASTATIN
     Indication: BLOOD CHOLESTEROL ABNORMAL
     Route: 048
     Dates: start: 2015
  6. LISINOPRIL. [Suspect]
     Active Substance: LISINOPRIL
     Indication: BLOOD PRESSURE ABNORMAL
     Route: 048
     Dates: start: 2012
  7. ASPIRIN. [Concomitant]
     Active Substance: ASPIRIN
     Indication: SURGERY
     Route: 048
     Dates: start: 1987
  8. TUDORZA PRESSAIR [Suspect]
     Active Substance: ACLIDINIUM BROMIDE
     Indication: CHRONIC OBSTRUCTIVE PULMONARY DISEASE
     Route: 055
     Dates: start: 2015
  9. VITAMINS NOS [Concomitant]
     Active Substance: VITAMINS
  10. LEVEMIR [Concomitant]
     Active Substance: INSULIN DETEMIR
     Indication: DIABETES MELLITUS
     Route: 058
     Dates: start: 2012
  11. COMBIVENT [Concomitant]
     Active Substance: ALBUTEROL SULFATE\IPRATROPIUM BROMIDE
     Indication: CHRONIC OBSTRUCTIVE PULMONARY DISEASE
     Dosage: AS REQUIRED
     Route: 055
     Dates: start: 2002

REACTIONS (8)
  - Drug dose omission [Not Recovered/Not Resolved]
  - Gastrointestinal disorder [Unknown]
  - Dyspnoea [Not Recovered/Not Resolved]
  - Device malfunction [Unknown]
  - Visual acuity reduced [Not Recovered/Not Resolved]
  - Off label use [Unknown]
  - Intentional product misuse [Unknown]
  - Product use issue [Unknown]

NARRATIVE: CASE EVENT DATE: 2015
